FAERS Safety Report 22308148 (Version 2)
Quarter: 2023Q2

REPORT INFORMATION
  Report Type: Spontaneous
  Country: RU (occurrence: RU)
  Receive Date: 20230511
  Receipt Date: 20230630
  Transmission Date: 20230722
  Serious: Yes (Other)
  Sender: FDA-Public Use
  Company Number: RU-SERVIER-S23004635

PATIENT

DRUGS (2)
  1. ONCASPAR [Suspect]
     Active Substance: PEGASPARGASE
     Indication: Acute lymphocytic leukaemia
     Dosage: UNK
     Route: 042
     Dates: start: 20230405
  2. ONCASPAR [Suspect]
     Active Substance: PEGASPARGASE
     Dosage: 1600 IU, UNK
     Route: 042
     Dates: start: 20230426, end: 20230426

REACTIONS (2)
  - Hypotension [Recovered/Resolved]
  - Rash maculo-papular [Recovered/Resolved]

NARRATIVE: CASE EVENT DATE: 20230426
